FAERS Safety Report 7565216-4 (Version None)
Quarter: 2011Q2

REPORT INFORMATION
  Report Type: 
  Country: None (occurrence: None)
  Receive Date: 20110622
  Receipt Date: 20110615
  Transmission Date: 20111010
  Serious: Yes (Death, Hospitalization)
  Sender: FDA-Public Use
  Company Number: FR-MERCK-1010FRA00106

PATIENT
  Age: 80 Year
  Sex: Female
  Weight: 94 kg

DRUGS (9)
  1. ATORVASTATIN CALCIUM [Concomitant]
     Route: 048
  2. ASPIRIN LYSINE [Concomitant]
     Route: 048
     Dates: start: 20100401
  3. LEVOTHYROXINE SODIUM [Concomitant]
     Route: 048
  4. JANUVIA [Suspect]
     Indication: TYPE 2 DIABETES MELLITUS
     Route: 048
     Dates: start: 20100315, end: 20101001
  5. METFORMIN HYDROCHLORIDE AND ROSIGLITAZONE MALEATE [Concomitant]
     Indication: TYPE 2 DIABETES MELLITUS
     Route: 048
     Dates: end: 20101001
  6. HYDROCHLOROTHIAZIDE AND VALSARTAN [Concomitant]
     Route: 048
  7. AMISULPRIDE [Concomitant]
     Route: 065
  8. DULOXETINE HYDROCHLORIDE [Concomitant]
     Route: 065
  9. HYDROCORTISONE [Concomitant]
     Route: 065

REACTIONS (3)
  - GASTROINTESTINAL OBSTRUCTION [None]
  - INTESTINAL INFARCTION [None]
  - SEPTIC SHOCK [None]
